FAERS Safety Report 4562036-X (Version None)
Quarter: 2005Q1

REPORT INFORMATION
  Report Type: 
  Country: None (occurrence: None)
  Receive Date: 20050125
  Receipt Date: 20050125
  Transmission Date: 20050727
  Serious: Yes (Disabling)
  Sender: FDA-Public Use
  Company Number: None

PATIENT
  Sex: Female
  Weight: 74.8435 kg

DRUGS (3)
  1. PROZAC [Suspect]
     Indication: ANXIETY
     Dosage: 20 MG   DAILY   ORAL
     Route: 048
  2. PROZAC [Suspect]
     Indication: DEPRESSION
     Dosage: 20 MG   DAILY   ORAL
     Route: 048
  3. PROZAC [Suspect]
     Indication: PREMENSTRUAL SYNDROME
     Dosage: 20 MG   DAILY   ORAL
     Route: 048

REACTIONS (3)
  - DEPRESSION [None]
  - DRUG WITHDRAWAL SYNDROME [None]
  - SUICIDAL IDEATION [None]
